FAERS Safety Report 4761342-3 (Version None)
Quarter: 2005Q3

REPORT INFORMATION
  Report Type: 
  Country: None (occurrence: None)
  Receive Date: 20050902
  Receipt Date: 20050902
  Transmission Date: 20060218
  Serious: Yes (Other)
  Sender: FDA-Public Use
  Company Number: None

PATIENT
  Age: 62 Year
  Sex: Male
  Weight: 64.4108 kg

DRUGS (2)
  1. MIDAZOLAM (BEDFORD) LOT 768411 EXP 5/07 [Suspect]
     Indication: BRONCHOSCOPY
     Dosage: 3.5 MG IV ONCE
     Route: 042
     Dates: start: 20050901
  2. FENTANYL [Concomitant]

REACTIONS (1)
  - THERAPEUTIC RESPONSE DECREASED [None]
